FAERS Safety Report 5368973-0 (Version None)
Quarter: 2007Q2

REPORT INFORMATION
  Report Type: 
  Country: None (occurrence: None)
  Receive Date: 20070531
  Receipt Date: 20070521
  Transmission Date: 20071010
  Serious: Yes (Death)
  Sender: FDA-Public Use
  Company Number: M-07-501

PATIENT
  Sex: Female
  Weight: 95.8 kg

DRUGS (1)
  1. PROFILNINE SD [Suspect]
     Indication: HEPARIN NEUTRALISATION THERAPY
     Dosage: 5070 IU;TIMES 1; IV PUSH
     Dates: start: 20070226

REACTIONS (5)
  - ARTERIAL OCCLUSIVE DISEASE [None]
  - ATRIAL FIBRILLATION [None]
  - DEEP VEIN THROMBOSIS [None]
  - DISSEMINATED INTRAVASCULAR COAGULATION [None]
  - SHOCK [None]
